FAERS Safety Report 24891184 (Version 1)
Quarter: 2025Q1

REPORT INFORMATION
  Report Type: Spontaneous
  Country: US (occurrence: US)
  Receive Date: 20250127
  Receipt Date: 20250127
  Transmission Date: 20250408
  Serious: Yes (Life-Threatening, Other)
  Sender: PFIZER
  Company Number: US-PFIZER INC-202500014846

PATIENT
  Age: 43 Year
  Sex: Male

DRUGS (2)
  1. LORAZEPAM [Suspect]
     Active Substance: LORAZEPAM
     Indication: Catatonia
     Dosage: 2 MG, DAILY
  2. LORAZEPAM [Suspect]
     Active Substance: LORAZEPAM
     Dosage: 12 MG, DAILY

REACTIONS (2)
  - Drug tolerance [Recovered/Resolved]
  - Off label use [Unknown]
